FAERS Safety Report 13296593 (Version 2)
Quarter: 2017Q1

REPORT INFORMATION
  Report Type: Spontaneous
  Country: IT (occurrence: IT)
  Receive Date: 20170306
  Receipt Date: 20170315
  Transmission Date: 20170428
  Serious: Yes (Other)
  Sender: FDA-Public Use
  Company Number: IT-ROCHE-1901222

PATIENT
  Age: 61 Year
  Sex: Female

DRUGS (3)
  1. OKI [Suspect]
     Active Substance: KETOPROFEN LYSINE
     Indication: PRODUCT USED FOR UNKNOWN INDICATION
     Dosage: 80 MG GRANULES FOR ORAL SOLUTION 30 DOUBLE SACHET
     Route: 048
  2. DELTACORTENE [Concomitant]
     Active Substance: PREDNISONE
     Route: 065
     Dates: start: 20170221
  3. ROCEFIN [Suspect]
     Active Substance: CEFTRIAXONE SODIUM
     Indication: ASTHMA
     Dosage: 250MG/2ML 1 VIAL OF POWDER + 1 VIAL OF SOLVENT
     Route: 065

REACTIONS (3)
  - Pruritus allergic [Recovering/Resolving]
  - Dermatitis bullous [Recovering/Resolving]
  - Urticaria [Recovering/Resolving]

NARRATIVE: CASE EVENT DATE: 20170226
